FAERS Safety Report 23063436 (Version 1)
Quarter: 2023Q4

REPORT INFORMATION
  Report Type: Spontaneous
  Country: US (occurrence: None)
  Receive Date: 20231012
  Receipt Date: 20231012
  Transmission Date: 20240109
  Serious: Yes (Other)
  Sender: FDA-Public Use
  Company Number: None

PATIENT
  Age: 71 Year
  Sex: Male
  Weight: 83.25 kg

DRUGS (9)
  1. EZETIMIBE [Suspect]
     Active Substance: EZETIMIBE
     Indication: Blood cholesterol increased
     Dosage: OTHER QUANTITY : 1 TABLET(S);?FREQUENCY : TWICE A DAY;?
     Route: 048
     Dates: start: 20230317, end: 20230921
  2. aspirin [Concomitant]
  3. METOPROLOL TARTRATE [Concomitant]
     Active Substance: METOPROLOL TARTRATE
  4. HYDROCHLOROTHIAZIDE [Concomitant]
     Active Substance: HYDROCHLOROTHIAZIDE
  5. CLOPIDOGREL BISULFATE [Concomitant]
     Active Substance: CLOPIDOGREL BISULFATE
  6. VITAMIN D3 [Concomitant]
     Active Substance: CHOLECALCIFEROL
  7. VITAMIN D3 [Concomitant]
     Active Substance: CHOLECALCIFEROL
  8. VITAMINS [Concomitant]
     Active Substance: VITAMINS
  9. glucosomine [Concomitant]

REACTIONS (6)
  - Arthralgia [None]
  - Mobility decreased [None]
  - Arthralgia [None]
  - Arthralgia [None]
  - Pain in extremity [None]
  - Arthralgia [None]

NARRATIVE: CASE EVENT DATE: 20230920
